FAERS Safety Report 8315987 (Version 2)
Quarter: 2013Q2

REPORT INFORMATION
  Report Type: Spontaneous
  Country: US (occurrence: US)
  Receive Date: 20111229
  Receipt Date: 20130513
  Transmission Date: 20140414
  Serious: Yes (Death, Hospitalization)
  Sender: FDA-Public Use
  Company Number: US-PFIZER INC-2011314024

PATIENT
  Age: 67 Year
  Sex: Female

DRUGS (3)
  1. LINEZOLID [Suspect]
     Dosage: UNK
     Route: 048
  2. FLUOXETINE HCL [Suspect]
     Dosage: UNK
     Route: 048
     Dates: start: 2010
  3. DULOXETINE [Suspect]
     Dosage: UNK
     Route: 048
     Dates: start: 2010

REACTIONS (1)
  - Medication error [Fatal]
